FAERS Safety Report 17490391 (Version 1)
Quarter: 2020Q1

REPORT INFORMATION
  Report Type: Spontaneous
  Country: US (occurrence: US)
  Receive Date: 20200303
  Receipt Date: 20200303
  Transmission Date: 20200409
  Serious: No
  Sender: FDA-Public Use
  Company Number: US-AKORN PHARMACEUTICALS-2019AKN00498

PATIENT
  Age: 55 Year
  Sex: Male
  Weight: 72.56 kg

DRUGS (12)
  1. MYORISAN [Suspect]
     Active Substance: ISOTRETINOIN
     Indication: FOLLICULITIS
  2. TAMSULOSIN [Concomitant]
     Active Substance: TAMSULOSIN
  3. MYORISAN [Suspect]
     Active Substance: ISOTRETINOIN
     Indication: ACNE
     Dosage: 40 MG, 1X/DAY
     Route: 048
     Dates: start: 20181001, end: 20190109
  4. CLARAVIS [Suspect]
     Active Substance: ISOTRETINOIN
     Indication: FOLLICULITIS
  5. CIALIS [Concomitant]
     Active Substance: TADALAFIL
  6. ZYRTEC [Concomitant]
     Active Substance: CETIRIZINE HYDROCHLORIDE
  7. CLARAVIS [Suspect]
     Active Substance: ISOTRETINOIN
     Indication: ACNE
     Dosage: 40 MG, 1X/DAY
     Route: 048
     Dates: start: 20181206, end: 20190109
  8. MYORISAN [Suspect]
     Active Substance: ISOTRETINOIN
     Indication: FOLLICULITIS
  9. ROSUVASTATIN. [Concomitant]
     Active Substance: ROSUVASTATIN
  10. BABY ASA [Concomitant]
     Active Substance: ASPIRIN
  11. MYORISAN [Suspect]
     Active Substance: ISOTRETINOIN
     Indication: ACNE
     Dosage: 30 MG, 2X/DAY
     Route: 048
     Dates: start: 20190112, end: 20190227
  12. CENTRUM SILVER [Concomitant]
     Active Substance: MINERALS\VITAMINS

REACTIONS (3)
  - Decreased appetite [Recovering/Resolving]
  - Off label use [Recovered/Resolved]
  - Ageusia [Recovering/Resolving]

NARRATIVE: CASE EVENT DATE: 20181001
